FAERS Safety Report 5399584-9 (Version None)
Quarter: 2007Q3

REPORT INFORMATION
  Report Type: 
  Country: None (occurrence: None)
  Receive Date: 20070727
  Receipt Date: 20070724
  Transmission Date: 20080115
  Serious: Yes (Life-Threatening, Hospitalization)
  Sender: FDA-Public Use
  Company Number: US-BOEHRINGER INGELHEIM PHARMACEUTICALS, INC.-2007-BP-17987BP

PATIENT
  Age: 72 Year
  Sex: Male

DRUGS (9)
  1. MOBIC [Suspect]
     Indication: OSTEOARTHRITIS
     Route: 048
     Dates: start: 20070417
  2. MOBIC [Suspect]
  3. GLUCOSAMINE AND CHONDROITIN [Concomitant]
  4. ALKA SELTZER [Concomitant]
  5. TUMS [Concomitant]
  6. CLARITIN [Concomitant]
  7. BISACODYL [Concomitant]
  8. TYLENOL (CAPLET) [Concomitant]
  9. IMODIUM [Concomitant]

REACTIONS (3)
  - CORONARY ARTERY DISEASE [None]
  - DIZZINESS EXERTIONAL [None]
  - PROCEDURAL DIZZINESS [None]
